FAERS Safety Report 5867738-0 (Version None)
Quarter: 2008Q3

REPORT INFORMATION
  Report Type: 
  Country: None (occurrence: None)
  Receive Date: 20080902
  Receipt Date: 20080303
  Transmission Date: 20090109
  Serious: No
  Sender: FDA-Public Use
  Company Number: US-ABBOTT-08P-163-0440871-00

PATIENT
  Sex: Male
  Weight: 63.56 kg

DRUGS (1)
  1. DEPAKOTE ER [Suspect]
     Indication: PETIT MAL EPILEPSY
     Route: 048
     Dates: start: 20050101, end: 20070801

REACTIONS (7)
  - BLOOD IMMUNOGLOBULIN A DECREASED [None]
  - DISTURBANCE IN ATTENTION [None]
  - FATIGUE [None]
  - HAIR TEXTURE ABNORMAL [None]
  - LISTLESS [None]
  - PAIN OF SKIN [None]
  - SOMNOLENCE [None]
